FAERS Safety Report 17433441 (Version 3)
Quarter: 2022Q4

REPORT INFORMATION
  Report Type: Other
  Country: CA (occurrence: None)
  Receive Date: 20200219
  Receipt Date: 20221223
  Transmission Date: 20230113
  Serious: Yes (Hospitalization)
  Sender: FDA-Public Use
  Company Number: CA-ROCHE-2443334

PATIENT
  Age: 34 Year
  Sex: Male

DRUGS (2)
  1. OCREVUS [Suspect]
     Active Substance: OCRELIZUMAB
     Indication: Relapsing-remitting multiple sclerosis
     Dosage: LIQUID 300 MG AT DAY 0 AND 14, THEN 600 MG EVERY 6 MONTHS?15/OCT/2019
     Route: 042
     Dates: start: 20191001
  2. VYVANSE [Concomitant]
     Active Substance: LISDEXAMFETAMINE DIMESYLATE
     Indication: Fatigue

REACTIONS (9)
  - Abscess [Recovered/Resolved]
  - Appendicitis [Unknown]
  - Fatigue [Not Recovered/Not Resolved]
  - Stress [Not Recovered/Not Resolved]
  - Nasopharyngitis [Unknown]
  - Pain of skin [Recovered/Resolved]
  - Heart rate increased [Recovered/Resolved]
  - Dyspnoea [Not Recovered/Not Resolved]
  - COVID-19 [Unknown]

NARRATIVE: CASE EVENT DATE: 20191001
